FAERS Safety Report 10857082 (Version 1)
Quarter: 2015Q1

REPORT INFORMATION
  Report Type: Spontaneous
  Country: US (occurrence: US)
  Receive Date: 20150223
  Receipt Date: 20150223
  Transmission Date: 20150721
  Serious: No
  Sender: FDA-Public Use
  Company Number: US-TARO-2014TAR00454

PATIENT
  Age: 53 Year
  Sex: Female
  Weight: 81.18 kg

DRUGS (5)
  1. TRAMADOL [Concomitant]
     Active Substance: TRAMADOL
     Dosage: 50 MG, 2X/DAY
  2. OMEPRAZOLE. [Concomitant]
     Active Substance: OMEPRAZOLE
     Dosage: 50 MG, 1X/DAY
  3. DIOVAN HCT [Concomitant]
     Active Substance: HYDROCHLOROTHIAZIDE\VALSARTAN
     Dosage: UNK MG, 1X/DAY
  4. ALPRAZOLAM. [Concomitant]
     Active Substance: ALPRAZOLAM
     Dosage: 2 MG, 1X/DAY
  5. TERCONAZOLE VAGINAL CREAM 0.4% [Suspect]
     Active Substance: TERCONAZOLE
     Indication: VULVOVAGINAL MYCOTIC INFECTION
     Dosage: 1 DOSAGE UNITS, 1X/DAY
     Dates: start: 20141004, end: 20141010

REACTIONS (5)
  - Diarrhoea [Recovered/Resolved]
  - Vulvovaginal discomfort [Not Recovered/Not Resolved]
  - Vaginal haemorrhage [Recovered/Resolved]
  - Adnexa uteri pain [Not Recovered/Not Resolved]
  - Vulvovaginal dryness [Not Recovered/Not Resolved]

NARRATIVE: CASE EVENT DATE: 201410
